FAERS Safety Report 10893177 (Version 1)
Quarter: 2015Q1

REPORT INFORMATION
  Report Type: Spontaneous
  Country: US (occurrence: US)
  Receive Date: 20150306
  Receipt Date: 20150306
  Transmission Date: 20150721
  Serious: Yes (Life-Threatening, Other)
  Sender: FDA-Public Use
  Company Number: US-BAYER-2015-030724

PATIENT
  Age: 41 Year
  Sex: Female

DRUGS (1)
  1. BAYER LOW DOSE [Suspect]
     Active Substance: ASPIRIN

REACTIONS (4)
  - Hemiplegia [Unknown]
  - Muscular weakness [Unknown]
  - Embolic stroke [Unknown]
  - Pulmonary embolism [Unknown]
